FAERS Safety Report 16332998 (Version 1)
Quarter: 2019Q2

REPORT INFORMATION
  Report Type: Report from Study
  Country: None (occurrence: US)
  Receive Date: 20190520
  Receipt Date: 20190520
  Transmission Date: 20190711
  Serious: Yes (Hospitalization)
  Sender: FDA-Public Use
  Company Number: US-ABBVIE-19S-163-2787426-00

PATIENT
  Sex: Male

DRUGS (1)
  1. ANDROGEL [Suspect]
     Active Substance: TESTOSTERONE
     Indication: PRODUCT USED FOR UNKNOWN INDICATION
     Route: 061

REACTIONS (8)
  - Arthritis [Unknown]
  - Renal failure [Unknown]
  - Carpal tunnel syndrome [Unknown]
  - Intervertebral disc degeneration [Recovered/Resolved]
  - Neuropathy peripheral [Unknown]
  - Hip arthroplasty [Unknown]
  - Pneumonia [Unknown]
  - Pleurisy [Unknown]
